FAERS Safety Report 8425661-1 (Version None)
Quarter: 2012Q2

REPORT INFORMATION
  Report Type: 
  Country: None (occurrence: None)
  Receive Date: 20120611
  Receipt Date: 20120604
  Transmission Date: 20120825
  Serious: Yes (Hospitalization, Other)
  Sender: FDA-Public Use
  Company Number: PHHY2012AU043297

PATIENT
  Sex: Female

DRUGS (8)
  1. VALPROATE SODIUM [Concomitant]
     Indication: AFFECTIVE DISORDER
     Dosage: 500/1000 MG, UNK
     Route: 048
  2. FLUPHENAZINE HCL [Concomitant]
     Indication: SCHIZOPHRENIA
     Dosage: 50 MG, EVERY 2 WEEKS
     Route: 030
     Dates: start: 20120514
  3. CLOZARIL [Suspect]
     Dosage: 12.5 MG
     Dates: start: 20120424
  4. CLOZARIL [Suspect]
     Dosage: 100 MG, UNK
  5. CLOZARIL [Suspect]
     Indication: SCHIZOPHRENIA
     Dosage: 25 MG
     Dates: start: 20120323
  6. RISPERIDONE [Concomitant]
     Indication: SCHIZOPHRENIA
     Dosage: 50 MG, EVERY 2 WEEKS
     Route: 030
     Dates: end: 20120401
  7. CLOZARIL [Suspect]
     Dosage: 25 MG
     Dates: end: 20120511
  8. OLANZAPINE [Concomitant]
     Dosage: 5 MG, BID
     Dates: start: 20120501

REACTIONS (17)
  - MONOCYTE COUNT INCREASED [None]
  - HYPERTHERMIA [None]
  - LIPASE INCREASED [None]
  - CONSTIPATION [None]
  - NEUTROPHIL COUNT INCREASED [None]
  - PANCREATITIS [None]
  - HAEMOGLOBIN DECREASED [None]
  - MENORRHAGIA [None]
  - VAGINAL PROLAPSE [None]
  - BLOOD DISORDER [None]
  - WHITE BLOOD CELL COUNT INCREASED [None]
  - INCONTINENCE [None]
  - DIARRHOEA [None]
  - CARDIAC DISORDER [None]
  - C-REACTIVE PROTEIN INCREASED [None]
  - TOOTH DISORDER [None]
  - EOSINOPHILIA [None]
